FAERS Safety Report 21431349 (Version 2)
Quarter: 2022Q4

REPORT INFORMATION
  Report Type: Report from Study
  Country: US (occurrence: US)
  Receive Date: 20221009
  Receipt Date: 20221031
  Transmission Date: 20230112
  Serious: Yes (Other)
  Sender: FDA-Public Use
  Company Number: US-BEH-2022149366

PATIENT
  Age: 66 Year
  Sex: Female
  Weight: 110.66 kg

DRUGS (3)
  1. HIZENTRA [Suspect]
     Active Substance: HUMAN IMMUNOGLOBULIN G
     Indication: Primary immunodeficiency syndrome
     Dosage: 13 GRAM, QW
     Route: 058
     Dates: start: 20220526
  2. HIZENTRA [Suspect]
     Active Substance: HUMAN IMMUNOGLOBULIN G
     Dosage: UNK
     Route: 058
     Dates: start: 20220901
  3. INSULIN NOS [Concomitant]
     Active Substance: INSULIN NOS

REACTIONS (13)
  - Viral pharyngitis [Recovered/Resolved]
  - Eschar [Recovered/Resolved]
  - Oropharyngeal pain [Recovered/Resolved]
  - Bell^s palsy [Recovered/Resolved]
  - Speech disorder [Recovered/Resolved]
  - Hypersomnia [Recovered/Resolved]
  - Dizziness [Not Recovered/Not Resolved]
  - Gait disturbance [Unknown]
  - Infusion site erythema [Recovered/Resolved]
  - No adverse event [Unknown]
  - Wrong technique in product usage process [Unknown]
  - Viral infection [Not Recovered/Not Resolved]
  - Feeling abnormal [Not Recovered/Not Resolved]

NARRATIVE: CASE EVENT DATE: 20220801
